FAERS Safety Report 17261489 (Version 1)
Quarter: 2020Q1

REPORT INFORMATION
  Report Type: Spontaneous
  Country: GB (occurrence: GB)
  Receive Date: 20200113
  Receipt Date: 20200113
  Transmission Date: 20200409
  Serious: Yes (Other)
  Sender: FDA-Public Use
  Company Number: GB-ADVANZ PHARMA-202001000159

PATIENT

DRUGS (4)
  1. GALPHARM FLU-MAX ALL IN ONE CHESTY COUGH AND COLD [Concomitant]
     Dosage: UNK
  2. PREDNISOLONE. [Suspect]
     Active Substance: PREDNISOLONE
     Indication: BRONCHIAL HYPERREACTIVITY
     Dosage: 20MG A DAY FOR ONE WEEK
     Route: 048
     Dates: start: 20191223, end: 20191230
  3. PREDNISOLONE. [Suspect]
     Active Substance: PREDNISOLONE
     Dosage: CURRENTLY 10MG A DAY
     Route: 048
     Dates: start: 20191231
  4. CERAZETTE [Concomitant]
     Dosage: UNK

REACTIONS (5)
  - Insomnia [Unknown]
  - Palpitations [Unknown]
  - Throat tightness [Unknown]
  - Dyspnoea [Unknown]
  - Anxiety [Not Recovered/Not Resolved]

NARRATIVE: CASE EVENT DATE: 20191227
